FAERS Safety Report 9475216 (Version 1)
Quarter: 2013Q3

REPORT INFORMATION
  Report Type: Spontaneous
  Country: JP (occurrence: JP)
  Receive Date: 20130825
  Receipt Date: 20130825
  Transmission Date: 20140515
  Serious: Yes (Other)
  Sender: FDA-Public Use
  Company Number: JP-MYLANLABS-2013S1018203

PATIENT
  Age: 54 Year
  Sex: Male

DRUGS (5)
  1. LAMOTRIGINE [Suspect]
     Indication: BIPOLAR I DISORDER
     Dosage: 50 MG/D, THEN INCREASED BY 50 MG/W; LATER RECEIVED 200 MG/D
     Route: 065
  2. LAMOTRIGINE [Suspect]
     Indication: BIPOLAR I DISORDER
     Dosage: 200 MG/D
     Route: 065
  3. ARIPIPRAZOLE [Concomitant]
     Dosage: 6 MG/D
     Route: 065
  4. LITHIUM [Concomitant]
     Dosage: 400 MG/D
     Route: 065
  5. SERTRALINE [Concomitant]
     Indication: DEPRESSIVE SYMPTOM
     Dosage: 25 MG/D
     Route: 065

REACTIONS (1)
  - Neuroleptic malignant syndrome [Recovering/Resolving]
